FAERS Safety Report 5369214-0 (Version None)
Quarter: 2007Q2

REPORT INFORMATION
  Report Type: 
  Country: None (occurrence: None)
  Receive Date: 20070625
  Receipt Date: 20070614
  Transmission Date: 20071010
  Serious: Yes (Other)
  Sender: FDA-Public Use
  Company Number: BR-ROCHE-502879

PATIENT
  Age: 79 Year
  Sex: Female

DRUGS (3)
  1. BONIVA [Suspect]
     Indication: OSTEOPOROSIS
     Route: 048
     Dates: start: 20061201, end: 20070201
  2. UNSPECIFIED MEDICATION [Concomitant]
     Indication: GLAUCOMA
     Route: 047
  3. UNSPECIFIED MEDICATIONS [Concomitant]

REACTIONS (3)
  - EYE HAEMORRHAGE [None]
  - HEADACHE [None]
  - OCULAR DISCOMFORT [None]
